FAERS Safety Report 10580127 (Version 2)
Quarter: 2016Q2

REPORT INFORMATION
  Report Type: Spontaneous
  Country: US (occurrence: US)
  Receive Date: 20141112
  Receipt Date: 20160614
  Transmission Date: 20160815
  Serious: No
  Sender: FDA-Public Use
  Company Number: US-PFIZER INC-2014311696

PATIENT
  Age: 51 Year
  Sex: Female
  Weight: 77.98 kg

DRUGS (1)
  1. RELPAX [Suspect]
     Active Substance: ELETRIPTAN HYDROBROMIDE
     Indication: MIGRAINE
     Dosage: 40 MG, UNK (ONCE OR TWICE A MONTH)
     Route: 048

REACTIONS (4)
  - Inflammation [Unknown]
  - Nausea [Unknown]
  - Colitis [Unknown]
  - Decreased appetite [Unknown]

NARRATIVE: CASE EVENT DATE: 201605
